FAERS Safety Report 25371944 (Version 1)
Quarter: 2025Q2

REPORT INFORMATION
  Report Type: Spontaneous
  Country: CN (occurrence: CN)
  Receive Date: 20250529
  Receipt Date: 20250529
  Transmission Date: 20250716
  Serious: Yes (Life-Threatening, Hospitalization)
  Sender: ROCHE
  Company Number: CN-ROCHE-10000297214

PATIENT
  Sex: Male

DRUGS (1)
  1. TECENTRIQ [Suspect]
     Active Substance: ATEZOLIZUMAB
     Indication: Lung neoplasm malignant
     Route: 065

REACTIONS (6)
  - Rash [Unknown]
  - Mouth ulceration [Unknown]
  - Cardiac dysfunction [Unknown]
  - Lung disorder [Unknown]
  - Hepatic function abnormal [Unknown]
  - Renal impairment [Unknown]
